FAERS Safety Report 4912372-X (Version None)
Quarter: 2006Q1

REPORT INFORMATION
  Report Type: 
  Country: None (occurrence: None)
  Receive Date: 20060215
  Receipt Date: 20050121
  Transmission Date: 20060701
  Serious: No
  Sender: FDA-Public Use
  Company Number: US-GLAXOSMITHKLINE-A0542866A

PATIENT
  Age: 57 Year
  Sex: Female
  Weight: 79.5 kg

DRUGS (2)
  1. VALTREX [Suspect]
     Dosage: 500MG TWICE PER DAY
     Route: 048
     Dates: start: 20050103, end: 20050105
  2. MEDROL [Concomitant]
     Dosage: 4MG UNKNOWN
     Route: 065

REACTIONS (4)
  - BURNING SENSATION [None]
  - PRURITUS [None]
  - RASH GENERALISED [None]
  - SWELLING FACE [None]
